FAERS Safety Report 4291167-7 (Version None)
Quarter: 2004Q1

REPORT INFORMATION
  Report Type: 
  Country: None (occurrence: None)
  Receive Date: 20040211
  Receipt Date: 20040128
  Transmission Date: 20041129
  Serious: Yes (Hospitalization)
  Sender: FDA-Public Use
  Company Number: 200410284EU

PATIENT
  Age: 74 Year
  Sex: Female

DRUGS (6)
  1. METRONIDAZOLE [Suspect]
     Indication: CROHN'S DISEASE
     Route: 048
  2. METRONIDAZOLE [Suspect]
     Indication: FEMALE GENITAL-DIGESTIVE TRACT FISTULA
     Route: 048
  3. MESALAMINE [Concomitant]
     Indication: CROHN'S DISEASE
     Route: 048
  4. MESALAMINE [Concomitant]
     Indication: FEMALE GENITAL-DIGESTIVE TRACT FISTULA
     Route: 048
  5. CIPROFLOXACIN [Concomitant]
     Indication: CROHN'S DISEASE
     Route: 048
  6. CIPROFLOXACIN [Concomitant]
     Indication: FEMALE GENITAL-DIGESTIVE TRACT FISTULA
     Route: 048

REACTIONS (16)
  - BALANCE DISORDER [None]
  - DIFFICULTY IN WALKING [None]
  - DRUG INTERACTION [None]
  - DYSARTHRIA [None]
  - DYSPHAGIA [None]
  - DYSSTASIA [None]
  - ENCEPHALOPATHY [None]
  - GAIT DISTURBANCE [None]
  - HEPATIC ENZYME INCREASED [None]
  - HYPERTROPHY [None]
  - HYPOREFLEXIA [None]
  - NEUROTOXICITY [None]
  - NYSTAGMUS [None]
  - POLYNEUROPATHY [None]
  - SENSORIMOTOR DISORDER [None]
  - VITAMIN B12 DEFICIENCY [None]
